FAERS Safety Report 5311233-4 (Version None)
Quarter: 2007Q2

REPORT INFORMATION
  Report Type: 
  Country: None (occurrence: None)
  Receive Date: 20070430
  Receipt Date: 20070419
  Transmission Date: 20071010
  Serious: Yes (Other)
  Sender: FDA-Public Use
  Company Number: PHBS2007BR07173

PATIENT
  Age: 57 Year
  Sex: Male
  Weight: 90 kg

DRUGS (2)
  1. TRILEPTAL [Suspect]
     Indication: CONVULSION
     Dosage: 300 MG/DAY
     Route: 048
  2. TRILEPTAL [Suspect]
     Dosage: 300 MG, Q12H
     Route: 048

REACTIONS (5)
  - BLOOD BILIRUBIN INCREASED [None]
  - CHROMATURIA [None]
  - CONVULSION [None]
  - JAUNDICE [None]
  - OCULAR ICTERUS [None]
